FAERS Safety Report 6947800-1 (Version None)
Quarter: 2010Q3

REPORT INFORMATION
  Report Type: 
  Country: None (occurrence: None)
  Receive Date: 20100828
  Receipt Date: 20091005
  Transmission Date: 20110219
  Serious: No
  Sender: FDA-Public Use
  Company Number: US-ABBOTT-09P-163-0600741-00

PATIENT
  Sex: Female
  Weight: 81.72 kg

DRUGS (5)
  1. NIASPAN [Suspect]
     Indication: BLOOD CHOLESTEROL INCREASED
     Dosage: NIGHTLY
     Dates: start: 20090701, end: 20091003
  2. NIASPAN [Suspect]
     Dosage: NIGHTLY.
     Dates: start: 20090801
  3. NIASPAN [Suspect]
     Dosage: NIGHTLY.
  4. SYNTHROID [Concomitant]
     Indication: PRODUCT USED FOR UNKNOWN INDICATION
  5. ZETIA [Concomitant]
     Indication: PRODUCT USED FOR UNKNOWN INDICATION
     Dates: start: 20090901, end: 20091003

REACTIONS (3)
  - DIZZINESS [None]
  - HEADACHE [None]
  - RASH PRURITIC [None]
